FAERS Safety Report 7889248-1 (Version None)
Quarter: 2011Q4

REPORT INFORMATION
  Report Type: 
  Country: None (occurrence: None)
  Receive Date: 20111103
  Receipt Date: 20111024
  Transmission Date: 20120403
  Serious: Yes (Hospitalization)
  Sender: FDA-Public Use
  Company Number: CA-MERCK-1110USA03533

PATIENT
  Age: 26 Year
  Sex: Female
  Weight: 81 kg

DRUGS (2)
  1. ORTHO TRI-CYCLEN [Suspect]
     Route: 048
  2. SINGULAIR [Suspect]
     Route: 048

REACTIONS (1)
  - SUICIDAL IDEATION [None]
